FAERS Safety Report 13950175 (Version 1)
Quarter: 2017Q3

REPORT INFORMATION
  Report Type: Spontaneous
  Country: US (occurrence: US)
  Receive Date: 20170908
  Receipt Date: 20170908
  Transmission Date: 20171128
  Serious: No
  Sender: FDA-Public Use
  Company Number: US-ROCHE-1133914

PATIENT
  Sex: Male

DRUGS (4)
  1. RITUXAN [Suspect]
     Active Substance: RITUXIMAB
     Indication: WALDENSTROM^S MACROGLOBULINAEMIA
     Route: 065
     Dates: start: 20010926
  2. RITUXAN [Suspect]
     Active Substance: RITUXIMAB
     Indication: OFF LABEL USE
  3. FLUDARABINE [Concomitant]
     Active Substance: FLUDARABINE PHOSPHATE
  4. AREDIA [Concomitant]
     Active Substance: PAMIDRONATE DISODIUM
     Indication: OSTEOPOROSIS

REACTIONS (12)
  - Rash erythematous [Unknown]
  - Depression [Unknown]
  - Pyrexia [Recovered/Resolved]
  - Myalgia [Unknown]
  - Arthralgia [Unknown]
  - Headache [Unknown]
  - Pruritus [Unknown]
  - Constipation [Unknown]
  - Dyspnoea [Recovered/Resolved]
  - Cough [Recovered/Resolved]
  - Vomiting [Unknown]
  - Nausea [Unknown]
